FAERS Safety Report 10185737 (Version 1)
Quarter: 2014Q2

REPORT INFORMATION
  Report Type: Spontaneous
  Country: US (occurrence: US)
  Receive Date: 20140521
  Receipt Date: 20140521
  Transmission Date: 20141212
  Serious: Yes (Disabling)
  Sender: FDA-Public Use
  Company Number: US-GILEAD-2014-0102591

PATIENT
  Age: 58 Year
  Sex: Female
  Weight: 69.39 kg

DRUGS (7)
  1. SOVALDI [Suspect]
     Indication: HEPATITIS C
     Dosage: 400 MG, QD
     Route: 048
     Dates: start: 20140404
  2. SIMEPREVIR [Suspect]
     Indication: HEPATITIS C
     Dosage: 150 MG, QD
     Route: 048
     Dates: start: 20140404
  3. OXYCODONE [Concomitant]
     Indication: PAIN
     Dosage: 30 MG, Q4HR
     Route: 048
     Dates: start: 2007
  4. ARMOUR THYROID [Concomitant]
     Indication: THYROID DISORDER
     Dosage: 90 MG, UNK
     Route: 048
  5. KEPRA [Concomitant]
     Indication: CONVULSION
     Dosage: 50 MG, BID
     Route: 048
     Dates: start: 201308
  6. VIMPAT [Concomitant]
     Indication: CONVULSION
     Dosage: 1500 MG, BID
     Route: 048
     Dates: start: 201308
  7. NICOTINE [Concomitant]
     Indication: SMOKING CESSATION THERAPY
     Dosage: UNK
     Route: 055

REACTIONS (3)
  - Hyperhidrosis [Not Recovered/Not Resolved]
  - Hot flush [Not Recovered/Not Resolved]
  - Off label use [Not Recovered/Not Resolved]
